FAERS Safety Report 12811211 (Version 1)
Quarter: 2016Q4

REPORT INFORMATION
  Report Type: Spontaneous
  Country: US (occurrence: US)
  Receive Date: 20161005
  Receipt Date: 20161005
  Transmission Date: 20170207
  Serious: No
  Sender: FDA-Public Use
  Company Number: None

PATIENT
  Age: 72 Year
  Sex: Female
  Weight: 67.13 kg

DRUGS (8)
  1. DORZOLAMIDE [Concomitant]
     Active Substance: DORZOLAMIDE
  2. GARLIQUE [Concomitant]
     Active Substance: GARLIC
  3. SYMBICORT [Concomitant]
     Active Substance: BUDESONIDE\FORMOTEROL FUMARATE DIHYDRATE
  4. OXYGEN. [Concomitant]
     Active Substance: OXYGEN
  5. SYMBICORT [Suspect]
     Active Substance: BUDESONIDE\FORMOTEROL FUMARATE DIHYDRATE
     Indication: CHRONIC OBSTRUCTIVE PULMONARY DISEASE
     Dosage: 2 PUFFS, TWICE DAILY INHALED
     Route: 055
  6. FISH OIL [Concomitant]
     Active Substance: FISH OIL
  7. LEVOTHYROXINE. [Concomitant]
     Active Substance: LEVOTHYROXINE
  8. BABY ASPIRIN [Concomitant]
     Active Substance: ASPIRIN

REACTIONS (4)
  - Incorrect product storage [None]
  - Product outer packaging issue [None]
  - Drug ineffective [None]
  - Product distribution issue [None]

NARRATIVE: CASE EVENT DATE: 2015
